FAERS Safety Report 21006824 (Version 2)
Quarter: 2022Q3

REPORT INFORMATION
  Report Type: Report from Study
  Country: US (occurrence: US)
  Receive Date: 20220625
  Receipt Date: 20220907
  Transmission Date: 20221027
  Serious: Yes (Other)
  Sender: FDA-Public Use
  Company Number: US-BRISTOL-MYERS SQUIBB COMPANY-2022-059096

PATIENT
  Age: 61 Year
  Sex: Male
  Weight: 80.74 kg

DRUGS (2)
  1. REVLIMID [Suspect]
     Active Substance: LENALIDOMIDE
     Indication: Plasma cell myeloma
     Route: 048
     Dates: start: 202204
  2. REVLIMID [Suspect]
     Active Substance: LENALIDOMIDE
     Route: 065

REACTIONS (7)
  - Malaise [Unknown]
  - Insomnia [Unknown]
  - Constipation [Unknown]
  - Fatigue [Unknown]
  - Pruritus [Unknown]
  - Neoplasm malignant [Unknown]
  - Somnolence [Unknown]
